FAERS Safety Report 5703938-8 (Version None)
Quarter: 2008Q2

REPORT INFORMATION
  Report Type: 
  Country: None (occurrence: None)
  Receive Date: 20080409
  Receipt Date: 20080325
  Transmission Date: 20081010
  Serious: Yes (Other)
  Sender: FDA-Public Use
  Company Number: ENTC2008-0100

PATIENT
  Age: 65 Year
  Sex: Male

DRUGS (4)
  1. STALEVO 100 [Suspect]
     Indication: PARKINSON'S DISEASE
  2. RIVASTIGMINE TARTRATE [Suspect]
     Indication: DEMENTIA
     Dosage: 1.5 MG; 3 MG; 4.5 MG; ORAL
     Route: 048
     Dates: start: 20080101
  3. RIVASTIGMINE TARTRATE [Suspect]
     Indication: DEMENTIA
     Dosage: 1.5 MG; 3 MG; 4.5 MG; ORAL
     Route: 048
     Dates: start: 20080101
  4. MIRAPEXIN [Suspect]
     Indication: PARKINSON'S DISEASE

REACTIONS (3)
  - CONDITION AGGRAVATED [None]
  - DYSARTHRIA [None]
  - HYPERHIDROSIS [None]
